FAERS Safety Report 12931694 (Version 1)
Quarter: 2016Q4

REPORT INFORMATION
  Report Type: Spontaneous
  Country: US (occurrence: US)
  Receive Date: 20161110
  Receipt Date: 20161110
  Transmission Date: 20170207
  Serious: Yes (Other)
  Sender: FDA-Public Use
  Company Number: US-ROCHE-1849948

PATIENT
  Age: 63 Year
  Sex: Male

DRUGS (1)
  1. RITUXAN [Suspect]
     Active Substance: RITUXIMAB
     Indication: CHRONIC HEPATITIS C
     Route: 042

REACTIONS (8)
  - Haematuria [Unknown]
  - Proteinuria [Unknown]
  - Purpura [Unknown]
  - Acute kidney injury [Unknown]
  - Cryoglobulinaemia [Unknown]
  - Glomerulonephritis membranoproliferative [Unknown]
  - Sepsis [Unknown]
  - Vasculitis [Unknown]
